FAERS Safety Report 6543805-3 (Version None)
Quarter: 2010Q1

REPORT INFORMATION
  Report Type: 
  Country: None (occurrence: None)
  Receive Date: 20100119
  Receipt Date: 20100119
  Transmission Date: 20100710
  Serious: Yes (Other)
  Sender: FDA-Public Use
  Company Number: None

PATIENT
  Age: 66 Year
  Sex: Female
  Weight: 74.8435 kg

DRUGS (1)
  1. CHANTIX [Suspect]
     Indication: SMOKING CESSATION THERAPY
     Dosage: 1/2MG X3DAYS1/2X2 QD 1XQD THEN 2XQD PO
     Route: 048
     Dates: start: 20100104, end: 20100112

REACTIONS (1)
  - RASH GENERALISED [None]
